FAERS Safety Report 10899163 (Version 1)
Quarter: 2015Q1

REPORT INFORMATION
  Report Type: Spontaneous
  Country: US (occurrence: US)
  Receive Date: 20150309
  Receipt Date: 20150309
  Transmission Date: 20150721
  Serious: Yes (Hospitalization)
  Sender: FDA-Public Use
  Company Number: US-MALLINCKRODT-T201501349

PATIENT
  Age: 51 Year
  Sex: Female

DRUGS (1)
  1. GABLOFEN [Suspect]
     Active Substance: BACLOFEN
     Indication: MUSCLE SPASTICITY
     Dosage: 144.56 MCG/DAY
     Route: 037

REACTIONS (4)
  - Implant site cellulitis [Recovering/Resolving]
  - Drug dose omission [Unknown]
  - Device failure [Unknown]
  - Wound [Recovered/Resolved]

NARRATIVE: CASE EVENT DATE: 201412
